FAERS Safety Report 4604325-6 (Version None)
Quarter: 2005Q2

REPORT INFORMATION
  Report Type: 
  Country: None (occurrence: None)
  Receive Date: 20050214
  Receipt Date: 20041118
  Transmission Date: 20051028
  Serious: No
  Sender: FDA-Public Use
  Company Number: USA041184159

PATIENT
  Sex: Male

DRUGS (3)
  1. CIALIS [Suspect]
     Dosage: 20 MG
  2. ACIPHEX [Concomitant]
  3. NELEU [Concomitant]

REACTIONS (7)
  - DYSPEPSIA [None]
  - HEADACHE [None]
  - INTENTIONAL MISUSE [None]
  - NASAL CONGESTION [None]
  - OVERDOSE [None]
  - STOMACH DISCOMFORT [None]
  - THERAPEUTIC RESPONSE DECREASED [None]
